FAERS Safety Report 14497963 (Version 2)
Quarter: 2018Q2

REPORT INFORMATION
  Report Type: Spontaneous
  Country: FR (occurrence: FR)
  Receive Date: 20180207
  Receipt Date: 20180409
  Transmission Date: 20180711
  Serious: Yes (Death, Hospitalization, Other)
  Sender: FDA-Public Use
  Company Number: FR-ASTELLAS-2018US006469

PATIENT
  Age: 63 Year
  Sex: Male

DRUGS (5)
  1. MODIGRAF [Suspect]
     Active Substance: TACROLIMUS
     Indication: LUNG TRANSPLANT
     Dosage: 0.2 MG, TWICE DAILY
     Route: 065
     Dates: start: 20160721
  2. CELLCEPT [Suspect]
     Active Substance: MYCOPHENOLATE MOFETIL\MYCOPHENOLATE MOFETIL HYDROCHLORIDE
     Indication: LUNG TRANSPLANT
     Route: 065
  3. PROGRAF [Suspect]
     Active Substance: TACROLIMUS\TACROLIMUS ANHYDROUS
     Dosage: UNK, UNKNOWN FREQ. (SERUM TROUGH LEVELS BETWEEN 5 AND 6 MICROG/L))
     Route: 065
  4. MODIGRAF [Suspect]
     Active Substance: TACROLIMUS
     Dosage: 0.2 MG, ONCE DAILY
     Route: 065
  5. PROGRAF [Suspect]
     Active Substance: TACROLIMUS\TACROLIMUS ANHYDROUS
     Indication: LUNG TRANSPLANT
     Dosage: UNK, UNKNOWN FREQ. (SERUM TROUGH LEVELS BETWEEN 7 AND 8 MICROG/L)
     Route: 065
     Dates: start: 20130419

REACTIONS (12)
  - Chronic kidney disease [Unknown]
  - Arteritis infective [Unknown]
  - Transplant rejection [Recovered/Resolved]
  - Pneumonia aspiration [Fatal]
  - Acute kidney injury [Fatal]
  - Septic shock [Fatal]
  - Ischaemic stroke [Unknown]
  - Pneumonia [Unknown]
  - Hypertension [Unknown]
  - Off label use [Unknown]
  - Brain abscess [Unknown]
  - Central nervous system fungal infection [Unknown]

NARRATIVE: CASE EVENT DATE: 201607
